FAERS Safety Report 4906221-3 (Version None)
Quarter: 2006Q1

REPORT INFORMATION
  Report Type: 
  Country: None (occurrence: None)
  Receive Date: 20060207
  Receipt Date: 20060125
  Transmission Date: 20060701
  Serious: Yes (Hospitalization)
  Sender: FDA-Public Use
  Company Number: 2006000019

PATIENT
  Age: 68 Year
  Sex: Female
  Weight: 22.6799 kg

DRUGS (5)
  1. EPIRUBICIN [Suspect]
     Indication: MALIGNANT NEOPLASM OF RENAL PELVIS
     Dosage: 40 MG (1 IN 1 D), INTRAVENOUS
     Route: 042
     Dates: start: 20050527, end: 20050527
  2. CISPLATIN [Suspect]
     Indication: MALIGNANT NEOPLASM OF RENAL PELVIS
     Dosage: 100 MG (100 MG, 1 IN 1 D), INTRAVENOUS
     Route: 042
     Dates: start: 20050527, end: 20050527
  3. VINBLASTINE SULFATE [Suspect]
     Indication: MALIGNANT NEOPLASM OF RENAL PELVIS
     Dosage: 4 MG (4 MG, 1 IN 1 D), INTRAVENOUS
     Route: 042
     Dates: start: 20050527, end: 20050527
  4. FUROSEMIDE [Concomitant]
     Indication: POLYURIA
     Dosage: 10 MG (5 MG, 2 IN 1 D)
     Dates: start: 20050527, end: 20050527
  5. METHOTREXATE [Concomitant]

REACTIONS (7)
  - BACK PAIN [None]
  - BLOOD PRESSURE SYSTOLIC INCREASED [None]
  - CONVULSION [None]
  - DEPRESSED LEVEL OF CONSCIOUSNESS [None]
  - INAPPROPRIATE ANTIDIURETIC HORMONE SECRETION [None]
  - RESPIRATORY RATE INCREASED [None]
  - VOMITING [None]
